FAERS Safety Report 6836567-3 (Version None)
Quarter: 2010Q3

REPORT INFORMATION
  Report Type: 
  Country: None (occurrence: None)
  Receive Date: 20100713
  Receipt Date: 20100630
  Transmission Date: 20110219
  Serious: Yes (Hospitalization)
  Sender: FDA-Public Use
  Company Number: US-ELI_LILLY_AND_COMPANY-US201007001247

PATIENT
  Sex: Female

DRUGS (8)
  1. FORTEO [Suspect]
     Indication: OSTEOPOROSIS
  2. BACLOFEN [Concomitant]
     Dosage: 10 MG, 3/D
  3. PAROXETINE HCL [Concomitant]
     Dosage: 10 MG, DAILY (1/D)
  4. LORAZEPAM [Concomitant]
     Dosage: 0.5 MG, 3/D
  5. TRAZODONE HYDROCHLORIDE [Concomitant]
     Dosage: 50 MG, EACH EVENING
  6. METOPROLOL SUCCINATE [Concomitant]
     Dosage: 25 MG, DAILY (1/D)
  7. PROPOXYPHENE HYDROCHLORIDE W/PARACETAMOL [Concomitant]
  8. VITAMINS [Concomitant]

REACTIONS (9)
  - ANXIETY [None]
  - DEPRESSION [None]
  - FEAR [None]
  - HOMICIDAL IDEATION [None]
  - MUSCLE SPASMS [None]
  - OEDEMA PERIPHERAL [None]
  - PAIN [None]
  - PAIN IN EXTREMITY [None]
  - TREMOR [None]
